FAERS Safety Report 4407221-2 (Version None)
Quarter: 2004Q3

REPORT INFORMATION
  Report Type: 
  Country: None (occurrence: None)
  Receive Date: 20040723
  Receipt Date: 20040723
  Transmission Date: 20050211
  Serious: Yes (Hospitalization)
  Sender: FDA-Public Use
  Company Number: None

PATIENT
  Age: 73 Year
  Sex: Male
  Weight: 120.6568 kg

DRUGS (2)
  1. INTEGRILIN [Suspect]
     Indication: CORONARY ARTERY DISEASE
     Dosage: 2 MCG/KG/MIN
  2. ANGIOMAX [Suspect]
     Dosage: 1.75 MG/KG/HR

REACTIONS (1)
  - PLATELET COUNT DECREASED [None]
